FAERS Safety Report 18826413 (Version 1)
Quarter: 2021Q1

REPORT INFORMATION
  Report Type: Spontaneous
  Country: US (occurrence: US)
  Receive Date: 20210201
  Receipt Date: 20210201
  Transmission Date: 20210419
  Serious: No
  Sender: FDA-Public Use
  Company Number: US-ABBVIE-20K-163-3399908-00

PATIENT
  Sex: Female

DRUGS (1)
  1. HUMIRA [Suspect]
     Active Substance: ADALIMUMAB
     Indication: RHEUMATOID ARTHRITIS
     Route: 058

REACTIONS (7)
  - Anger [Unknown]
  - Anxiety [Unknown]
  - Pain in extremity [Unknown]
  - Arthralgia [Unknown]
  - Feeling abnormal [Unknown]
  - Impaired work ability [Unknown]
  - Drug ineffective [Unknown]
